FAERS Safety Report 5082339-2 (Version None)
Quarter: 2006Q3

REPORT INFORMATION
  Report Type: 
  Country: None (occurrence: None)
  Receive Date: 20060817
  Receipt Date: 20060626
  Transmission Date: 20061208
  Serious: Yes (Other)
  Sender: FDA-Public Use
  Company Number: US-KINGPHARMUSA00001-K200600830

PATIENT
  Age: 55 Year
  Sex: Male

DRUGS (5)
  1. ALTACE [Suspect]
     Indication: HYPERTENSION
     Dosage: 5 MG, QD
     Route: 048
     Dates: start: 20050209, end: 20060701
  2. CIALIS ^GLAXOSMITHKLINE^ [Concomitant]
     Dosage: 20 MG, UNK
     Route: 048
  3. RIVOTRIL [Concomitant]
     Dosage: 4 MG, UNK
     Route: 048
  4. CITALOPRAM [Concomitant]
     Dosage: 80 MG, UNK
     Route: 048
  5. RISPERDAL [Concomitant]
     Dosage: 2 MG, UNK
     Route: 048

REACTIONS (4)
  - DYSPHAGIA [None]
  - DYSPNOEA [None]
  - OESOPHAGEAL STENOSIS [None]
  - THROAT TIGHTNESS [None]
